FAERS Safety Report 24439620 (Version 1)
Quarter: 2024Q4

REPORT INFORMATION
  Report Type: Other
  Country: IN (occurrence: IN)
  Receive Date: 20241015
  Receipt Date: 20241015
  Transmission Date: 20250115
  Serious: Yes (Hospitalization)
  Sender: B BRAUN
  Company Number: IN-B.Braun Medical Inc.-2163114

PATIENT
  Age: 42 Year
  Sex: Female

DRUGS (11)
  1. CEFUROXIME [Suspect]
     Active Substance: CEFUROXIME
  2. LEFLUNOMIDE [Suspect]
     Active Substance: LEFLUNOMIDE
  3. RANITIDINE [Concomitant]
     Active Substance: RANITIDINE
  4. DOMPERIDONE [Concomitant]
     Active Substance: DOMPERIDONE
  5. METHYLPREDNISOLONE [Concomitant]
     Active Substance: METHYLPREDNISOLONE
  6. ETORICOXIB [Concomitant]
     Active Substance: ETORICOXIB
  7. Ssodium hyaluronate [Concomitant]
  8. VITAMIN C [Concomitant]
     Active Substance: ASCORBIC ACID
  9. SODIUM CHONDROITIN SULFATE [Concomitant]
     Active Substance: SODIUM CHONDROITIN SULFATE
  10. ARGININE [Concomitant]
     Active Substance: ARGININE
  11. COLLAGEN [Concomitant]
     Active Substance: COLLAGEN

REACTIONS (2)
  - Drug reaction with eosinophilia and systemic symptoms [Recovering/Resolving]
  - Off label use [Recovering/Resolving]
